FAERS Safety Report 6811132-2 (Version None)
Quarter: 2010Q2

REPORT INFORMATION
  Report Type: 
  Country: None (occurrence: None)
  Receive Date: 20100630
  Receipt Date: 20090407
  Transmission Date: 20101027
  Serious: No
  Sender: FDA-Public Use
  Company Number: US-PFIZER INC-2009197542

PATIENT
  Sex: Female
  Weight: 43.091 kg

DRUGS (5)
  1. NICOTROL [Suspect]
     Indication: SMOKING CESSATION THERAPY
     Dates: start: 20070101
  2. LORCET-HD [Concomitant]
     Dosage: UNK
  3. XANAX [Concomitant]
     Dosage: UNK
  4. LOMOTIL [Concomitant]
     Dosage: UNK
  5. EVISTA [Concomitant]
     Dosage: UNK

REACTIONS (1)
  - TOBACCO USER [None]
